FAERS Safety Report 4884423-2 (Version None)
Quarter: 2006Q1

REPORT INFORMATION
  Report Type: 
  Country: None (occurrence: None)
  Receive Date: 20060117
  Receipt Date: 20060117
  Transmission Date: 20060701
  Serious: Yes (Hospitalization)
  Sender: FDA-Public Use
  Company Number: None

PATIENT
  Age: 56 Year
  Sex: Female
  Weight: 105.2345 kg

DRUGS (2)
  1. ZESTORETIC [Suspect]
     Indication: HYPERTENSION
     Dosage: ^1 TAB^ DAILY PO
     Route: 048
     Dates: start: 20050905
  2. PROCARDIA [Concomitant]

REACTIONS (1)
  - ABDOMINAL PAIN [None]
